FAERS Safety Report 5485191-6 (Version None)
Quarter: 2007Q4

REPORT INFORMATION
  Report Type: 
  Country: None (occurrence: None)
  Receive Date: 20071010
  Receipt Date: 20071010
  Transmission Date: 20080405
  Serious: Yes (Disabling)
  Sender: FDA-Public Use
  Company Number: None

PATIENT
  Age: 71 Year
  Sex: Male
  Weight: 81.6475 kg

DRUGS (5)
  1. LEVAQUIN [Suspect]
     Indication: URINARY TRACT INFECTION
     Dosage: 500 MG Q 24HOURS IV
     Route: 042
     Dates: start: 20071009, end: 20071009
  2. FLAGYL [Concomitant]
  3. VANCOMYCIN [Concomitant]
  4. ATIVAN [Concomitant]
  5. HALDOL [Concomitant]

REACTIONS (5)
  - AGGRESSION [None]
  - AGITATION [None]
  - CONFUSIONAL STATE [None]
  - PHYSICAL ASSAULT [None]
  - PSYCHOTIC DISORDER [None]
